FAERS Safety Report 21410146 (Version 1)
Quarter: 2022Q4

REPORT INFORMATION
  Report Type: Spontaneous
  Country: US (occurrence: US)
  Receive Date: 20221005
  Receipt Date: 20221005
  Transmission Date: 20230112
  Serious: No
  Sender: FDA-Public Use
  Company Number: US-ALLERGAN-2222004US

PATIENT
  Sex: Female

DRUGS (2)
  1. UBRELVY [Suspect]
     Active Substance: UBROGEPANT
     Indication: Migraine
     Dosage: 2 DF, QAM
  2. UBRELVY [Suspect]
     Active Substance: UBROGEPANT
     Indication: Headache

REACTIONS (3)
  - Hypertension [Unknown]
  - Drug ineffective [Unknown]
  - Dizziness [Unknown]
